FAERS Safety Report 19319981 (Version 1)
Quarter: 2021Q2

REPORT INFORMATION
  Report Type: Spontaneous
  Country: US (occurrence: US)
  Receive Date: 20210528
  Receipt Date: 20210528
  Transmission Date: 20210717
  Serious: Yes (Other)
  Sender: FDA-Public Use
  Company Number: None

PATIENT
  Age: 67 Year
  Sex: Male
  Weight: 97.2 kg

DRUGS (15)
  1. AMLODIPINE [Suspect]
     Active Substance: AMLODIPINE BESYLATE
     Indication: HYPERTENSION
     Dosage: ?          QUANTITY:1 TABLET(S);?
     Route: 048
     Dates: start: 20210305, end: 20210522
  2. DOFETILIDE. [Concomitant]
     Active Substance: DOFETILIDE
  3. ARMODAFINIL. [Concomitant]
     Active Substance: ARMODAFINIL
  4. OXYCODONE/ACETAMINOPHEN [Concomitant]
     Active Substance: ACETAMINOPHEN\OXYCODONE HYDROCHLORIDE
  5. MAGNESIUM [Concomitant]
     Active Substance: MAGNESIUM
  6. REPATHA [Concomitant]
     Active Substance: EVOLOCUMAB
  7. VITAMIN D3 [Concomitant]
     Active Substance: CHOLECALCIFEROL
  8. ASPIRIN. [Concomitant]
     Active Substance: ASPIRIN
  9. CYMBALTA [Concomitant]
     Active Substance: DULOXETINE HYDROCHLORIDE
  10. FLUTICASONE PROP NSL SPR [Concomitant]
  11. COUMADIN/WARFARIN [Concomitant]
  12. VITAMIN B12 [Concomitant]
     Active Substance: CYANOCOBALAMIN
  13. ZINC. [Concomitant]
     Active Substance: ZINC
  14. TESTOSTERONE CYP [Concomitant]
     Active Substance: TESTOSTERONE CYPIONATE
  15. TIZANIDINE HCL [Concomitant]
     Active Substance: TIZANIDINE HYDROCHLORIDE

REACTIONS (13)
  - Flushing [None]
  - Anosmia [None]
  - Myalgia [None]
  - Fatigue [None]
  - Arthralgia [None]
  - Hyperhidrosis [None]
  - Hypoaesthesia [None]
  - Chills [None]
  - Influenza [None]
  - Ageusia [None]
  - Balance disorder [None]
  - Formication [None]
  - Paraesthesia [None]

NARRATIVE: CASE EVENT DATE: 20210516
